FAERS Safety Report 4847230-2 (Version None)
Quarter: 2005Q4

REPORT INFORMATION
  Report Type: 
  Country: None (occurrence: None)
  Receive Date: 20051207
  Receipt Date: 20041203
  Transmission Date: 20060501
  Serious: Yes (Other)
  Sender: FDA-Public Use
  Company Number: GB-GLAXOSMITHKLINE-B0359449A

PATIENT
  Sex: Female

DRUGS (1)
  1. SEROXAT [Suspect]
     Indication: DEPRESSION
     Route: 065

REACTIONS (12)
  - ANGER [None]
  - DEPRESSION [None]
  - HEPATIC NECROSIS [None]
  - HOSTILITY [None]
  - ILL-DEFINED DISORDER [None]
  - LETHARGY [None]
  - OVERDOSE [None]
  - RENAL FAILURE ACUTE [None]
  - SELF MUTILATION [None]
  - SKIN LACERATION [None]
  - SUICIDAL IDEATION [None]
  - SUICIDE ATTEMPT [None]
